FAERS Safety Report 9285326 (Version 2)
Quarter: 2013Q2

REPORT INFORMATION
  Report Type: Spontaneous
  Country: US (occurrence: None)
  Receive Date: 20130507
  Receipt Date: 20130530
  Transmission Date: 20140414
  Serious: Yes (Hospitalization)
  Sender: FDA-Public Use
  Company Number: 2013S1001005

PATIENT
  Age: 57 Year
  Sex: Male

DRUGS (10)
  1. LIPOFEN [Suspect]
     Indication: HYPERLIPIDAEMIA
     Route: 048
     Dates: start: 20130319, end: 20130327
  2. ANDROGEL [Concomitant]
  3. ASPIRIN [Concomitant]
  4. DIPHENHYDRAMINE HYDROCHLORIDE [Concomitant]
  5. DEXILANSOPRAZOLE [Concomitant]
  6. EFFEXOR XR [Concomitant]
  7. METFORMIN HCL [Concomitant]
  8. MULTIPLE VITAMINS [Concomitant]
  9. QUESTRAN LIGHT [Suspect]
  10. VESCEPA [Concomitant]

REACTIONS (5)
  - Asthenia [None]
  - Fatigue [None]
  - Myopathy [None]
  - Abdominal discomfort [None]
  - Depressed level of consciousness [None]
